FAERS Safety Report 5567736-0 (Version None)
Quarter: 2007Q4

REPORT INFORMATION
  Report Type: 
  Country: None (occurrence: None)
  Receive Date: 20071218
  Receipt Date: 20071213
  Transmission Date: 20080405
  Serious: Yes (Hospitalization)
  Sender: FDA-Public Use
  Company Number: 2007BI017712

PATIENT
  Sex: Male

DRUGS (1)
  1. NATALIZUMAB [Suspect]
     Indication: MULTIPLE SCLEROSIS
     Dosage: 300 MG,QM,IV
     Route: 042
     Dates: start: 20061031

REACTIONS (8)
  - CONCUSSION [None]
  - FALL [None]
  - GAIT DISTURBANCE [None]
  - HAEMORRHAGE [None]
  - HEAD INJURY [None]
  - HYPOAESTHESIA [None]
  - LACERATION [None]
  - URINARY TRACT INFECTION [None]
